FAERS Safety Report 9546983 (Version 1)
Quarter: 2013Q2

REPORT INFORMATION
  Report Type: Spontaneous
  Country: US (occurrence: None)
  Receive Date: 20130606
  Receipt Date: 20130606
  Transmission Date: 20140414
  Serious: No
  Sender: FDA-Public Use
  Company Number: 163-POMAL-13034807

PATIENT
  Age: 55 Year
  Sex: Female

DRUGS (4)
  1. POMALYST (POMALIDOMIDE) (CAPSULES) [Suspect]
     Indication: PLASMA CELL MYELOMA
     Dosage: 2`1 IN 21DAYS
     Route: 048
     Dates: start: 20130307
  2. DEXAMETHASONE (DEXAMETHASONE) [Concomitant]
  3. MORPHINE SULFATE (MORPHINE SULFATE) [Concomitant]
  4. OXYCONTIN (OXYCODONE HYDROCHLORIDE) [Concomitant]

REACTIONS (1)
  - Tongue ulceration [None]
